FAERS Safety Report 9108272 (Version 1)
Quarter: 2013Q1

REPORT INFORMATION
  Report Type: Report from Study
  Country: FR (occurrence: FR)
  Receive Date: 20130222
  Receipt Date: 20130222
  Transmission Date: 20140127
  Serious: Yes (Hospitalization)
  Sender: FDA-Public Use
  Company Number: FR-ROCHE-1190445

PATIENT
  Age: 62 Year
  Sex: Female

DRUGS (20)
  1. TOCILIZUMAB [Suspect]
     Indication: RHEUMATOID ARTHRITIS
     Route: 041
     Dates: start: 20101109
  2. TOCILIZUMAB [Suspect]
     Route: 065
     Dates: start: 20101207
  3. TOCILIZUMAB [Suspect]
     Route: 065
     Dates: start: 20110113
  4. TOCILIZUMAB [Suspect]
     Route: 065
     Dates: start: 20110211
  5. TOCILIZUMAB [Suspect]
     Route: 065
     Dates: start: 20110315
  6. TOCILIZUMAB [Suspect]
     Route: 065
     Dates: start: 20110421
  7. TOCILIZUMAB [Suspect]
     Route: 065
     Dates: start: 20110523
  8. TOCILIZUMAB [Suspect]
     Route: 065
     Dates: start: 20111216
  9. TOCILIZUMAB [Suspect]
     Route: 065
     Dates: start: 20120124
  10. TOCILIZUMAB [Suspect]
     Route: 065
     Dates: start: 20120227
  11. TOCILIZUMAB [Suspect]
     Route: 065
     Dates: start: 20120327
  12. TOCILIZUMAB [Suspect]
     Route: 065
     Dates: start: 20120524
  13. TRAMADOL [Concomitant]
  14. PARACETAMOL [Concomitant]
     Route: 065
  15. INEXIUM [Concomitant]
     Route: 065
  16. ARTISIAL (FRANCE) [Concomitant]
     Dosage: 6/8 PULVERSATIONS PER DAY
     Route: 065
  17. SEROPLEX [Concomitant]
     Route: 065
  18. XALATAN [Concomitant]
     Dosage: 1 1DROP/DAY/EYE
     Route: 065
  19. CORTANCYL [Concomitant]
     Route: 065
  20. HYDROXYCHLOROQUINE [Concomitant]
     Route: 065

REACTIONS (15)
  - Sciatica [Recovered/Resolved]
  - Osteoporosis [Recovered/Resolved]
  - Hyperthermia [Recovered/Resolved]
  - Sputum purulent [Recovered/Resolved]
  - Oral infection [Recovered/Resolved]
  - Localised infection [Recovered/Resolved]
  - Sjogren^s syndrome [Not Recovered/Not Resolved]
  - Rhinitis [Recovered/Resolved]
  - Pharyngitis [Not Recovered/Not Resolved]
  - Bronchitis [Not Recovered/Not Resolved]
  - Nasopharyngitis [Recovered/Resolved]
  - Cough [Recovered/Resolved]
  - Sinusitis [Recovered/Resolved]
  - Tracheitis [Recovered/Resolved]
  - Pain in extremity [Recovered/Resolved]
